FAERS Safety Report 12506572 (Version 1)
Quarter: 2016Q2

REPORT INFORMATION
  Report Type: Spontaneous
  Country: JP (occurrence: JP)
  Receive Date: 20160628
  Receipt Date: 20160628
  Transmission Date: 20160815
  Serious: Yes (Death)
  Sender: FDA-Public Use
  Company Number: PHJP1900JP004828

PATIENT
  Age: 46 Year
  Sex: Male

DRUGS (13)
  1. SOLU-MEDROL [Concomitant]
     Active Substance: METHYLPREDNISOLONE SODIUM SUCCINATE
     Dosage: 125 UNK, UNK
     Dates: start: 19900304, end: 19900304
  2. SOLU-MEDROL [Concomitant]
     Active Substance: METHYLPREDNISOLONE SODIUM SUCCINATE
     Dosage: 60 UNK, UNK
     Dates: start: 19900305, end: 19900318
  3. SANDIMMUN INJECTION [Suspect]
     Active Substance: CYCLOSPORINE
     Dosage: 230 UNK, UNK
     Route: 048
     Dates: start: 19900305, end: 19900311
  4. SANDIMMUN INJECTION [Suspect]
     Active Substance: CYCLOSPORINE
     Dosage: 200 UNK, UNK
     Route: 048
     Dates: start: 19900319
  5. SOLU-MEDROL [Concomitant]
     Active Substance: METHYLPREDNISOLONE SODIUM SUCCINATE
     Dosage: 40 UNK, UNK
     Dates: start: 19900326, end: 19900401
  6. SANDIMMUN INJECTION [Suspect]
     Active Substance: CYCLOSPORINE
     Indication: GRAFT VERSUS HOST DISEASE
     Dosage: 310 MG, UNK
     Route: 065
     Dates: start: 19900218, end: 19900221
  7. SOLU-MEDROL [Concomitant]
     Active Substance: METHYLPREDNISOLONE SODIUM SUCCINATE
     Dosage: 50 UNK, UNK
     Dates: start: 19900319, end: 19900325
  8. SOLU-MEDROL [Concomitant]
     Active Substance: METHYLPREDNISOLONE SODIUM SUCCINATE
     Indication: GRAFT VERSUS HOST DISEASE
     Dosage: 30 MG, UNK
     Route: 065
     Dates: start: 19900216, end: 19900227
  9. SOLU-MEDROL [Concomitant]
     Active Substance: METHYLPREDNISOLONE SODIUM SUCCINATE
     Dosage: 500 UNK, UNK
     Dates: start: 19900228, end: 19900302
  10. SOLU-MEDROL [Concomitant]
     Active Substance: METHYLPREDNISOLONE SODIUM SUCCINATE
     Dosage: 250 UNK, UNK
     Dates: start: 19900303, end: 19900303
  11. SOLU-MEDROL [Concomitant]
     Active Substance: METHYLPREDNISOLONE SODIUM SUCCINATE
     Dosage: 30 MG, UNK
     Dates: start: 19900402
  12. SANDIMMUN INJECTION [Suspect]
     Active Substance: CYCLOSPORINE
     Dosage: 185 UNK, UNK
     Route: 048
     Dates: start: 19900222, end: 19900304
  13. SANDIMMUN INJECTION [Suspect]
     Active Substance: CYCLOSPORINE
     Dosage: 250 UNK, UNK
     Route: 048
     Dates: start: 19900312, end: 19900318

REACTIONS (2)
  - Oedema [Not Recovered/Not Resolved]
  - Renal impairment [Fatal]
